FAERS Safety Report 5152471-3 (Version None)
Quarter: 2006Q4

REPORT INFORMATION
  Report Type: 
  Country: None (occurrence: None)
  Receive Date: 20061116
  Receipt Date: 20060929
  Transmission Date: 20070319
  Serious: Yes (Other)
  Sender: FDA-Public Use
  Company Number: US-ELI_LILLY_AND_COMPANY-US200609007482

PATIENT
  Age: 65 Year
  Sex: Female
  Weight: 58.503 kg

DRUGS (7)
  1. ZOFRAN [Concomitant]
     Route: 048
  2. CARAFATE                                /USA/ [Concomitant]
     Dosage: 1 UNK, DAILY (1/D)
     Route: 048
  3. PROTONIX [Concomitant]
     Dosage: 1 UNK, 2/D
  4. ZANTAC [Concomitant]
     Dosage: 1 UNK, 2/D
  5. PANCREASE [Concomitant]
  6. GEMZAR [Suspect]
     Indication: SMALL INTESTINE CARCINOMA
     Dosage: UNK, UNK
     Dates: start: 20060801
  7. ASPIRIN [Concomitant]
     Indication: PLATELET COUNT INCREASED
     Dosage: UNK, DAILY (1/D)
     Route: 048
     Dates: start: 20060901

REACTIONS (3)
  - ABDOMINAL PAIN [None]
  - EYE DISORDER [None]
  - PLATELET COUNT INCREASED [None]
